FAERS Safety Report 12695760 (Version 1)
Quarter: 2016Q3

REPORT INFORMATION
  Report Type: Spontaneous
  Country: ES (occurrence: ES)
  Receive Date: 20160829
  Receipt Date: 20160829
  Transmission Date: 20161109
  Serious: Yes (Hospitalization, Other)
  Sender: FDA-Public Use
  Company Number: ES-GILEAD-2015-0180208

PATIENT
  Age: 52 Year
  Sex: Female

DRUGS (6)
  1. SOVALDI [Suspect]
     Active Substance: SOFOSBUVIR
     Dosage: 1 DF, QD
     Route: 048
     Dates: start: 201510
  2. DACLATASVIR. [Suspect]
     Active Substance: DACLATASVIR
     Dosage: 1 DF, QD
     Route: 065
     Dates: start: 201510
  3. SOVALDI [Suspect]
     Active Substance: SOFOSBUVIR
     Indication: CHRONIC HEPATITIS C
     Dosage: 1 DF, TID
     Route: 048
  4. DACLATASVIR. [Suspect]
     Active Substance: DACLATASVIR
     Indication: CHRONIC HEPATITIS C
     Dosage: 1 DF, TID
     Route: 065
  5. RIBAVIRIN. [Concomitant]
     Active Substance: RIBAVIRIN
     Indication: CHRONIC HEPATITIS C
     Dosage: 600 MG, QD
     Dates: start: 201510
  6. RIBAVIRIN. [Concomitant]
     Active Substance: RIBAVIRIN
     Dosage: 400 MG, QD

REACTIONS (10)
  - Accidental overdose [Recovered/Resolved]
  - Blood bilirubin increased [Unknown]
  - Chromaturia [Unknown]
  - Abdominal discomfort [Unknown]
  - Constipation [Unknown]
  - Anaemia [Unknown]
  - Jaundice [Unknown]
  - Encephalopathy [Unknown]
  - Medication error [Recovered/Resolved]
  - Nausea [Unknown]
